FAERS Safety Report 6168673-3 (Version None)
Quarter: 2009Q2

REPORT INFORMATION
  Report Type: 
  Country: None (occurrence: None)
  Receive Date: 20090424
  Receipt Date: 20090424
  Transmission Date: 20091009
  Serious: Yes (Hospitalization)
  Sender: FDA-Public Use
  Company Number: None

PATIENT
  Age: 77 Year
  Sex: Male

DRUGS (3)
  1. LOSARTAN POTASSIUM [Suspect]
     Indication: CARDIAC FAILURE CONGESTIVE
     Dosage: 100 MG EVERY DAY PO
     Route: 048
     Dates: start: 20080922, end: 20090324
  2. LOSARTAN POTASSIUM [Suspect]
     Indication: DIABETES MELLITUS
     Dosage: 100 MG EVERY DAY PO
     Route: 048
     Dates: start: 20080922, end: 20090324
  3. LOSARTAN POTASSIUM [Suspect]
     Indication: HYPERTENSION
     Dosage: 100 MG EVERY DAY PO
     Route: 048
     Dates: start: 20080922, end: 20090324

REACTIONS (1)
  - HYPERKALAEMIA [None]
